FAERS Safety Report 4408440-1 (Version None)
Quarter: 2004Q3

REPORT INFORMATION
  Report Type: 
  Country: None (occurrence: None)
  Receive Date: 20040723
  Receipt Date: 20040709
  Transmission Date: 20050211
  Serious: Yes (Hospitalization, Other)
  Sender: FDA-Public Use
  Company Number: HQWYE973710JUL04

PATIENT
  Age: 84 Year
  Sex: Female

DRUGS (13)
  1. CORDARONE [Suspect]
     Indication: ARRHYTHMIA
     Dosage: 200 MG 5X PER 1 WK, 200 MG 1X PER 1 DAY
     Route: 048
     Dates: end: 20040608
  2. CORDARONE [Suspect]
     Indication: ATRIAL FIBRILLATION
     Dosage: 200 MG 5X PER 1 WK, 200 MG 1X PER 1 DAY
     Route: 048
     Dates: end: 20040608
  3. CORDARONE [Suspect]
     Indication: TACHYCARDIA
     Dosage: 200 MG 5X PER 1 WK, 200 MG 1X PER 1 DAY
     Route: 048
     Dates: end: 20040608
  4. CORDARONE [Suspect]
     Indication: ARRHYTHMIA
     Dosage: 200 MG 5X PER 1 WK, 200 MG 1X PER 1 DAY
     Route: 048
     Dates: start: 20040610
  5. CORDARONE [Suspect]
     Indication: ATRIAL FIBRILLATION
     Dosage: 200 MG 5X PER 1 WK, 200 MG 1X PER 1 DAY
     Route: 048
     Dates: start: 20040610
  6. CORDARONE [Suspect]
     Indication: TACHYCARDIA
     Dosage: 200 MG 5X PER 1 WK, 200 MG 1X PER 1 DAY
     Route: 048
     Dates: start: 20040610
  7. AVLOCARDYL (PROPANOLOL HYDROCHLORIDE, TABLET) [Suspect]
     Indication: ARRHYTHMIA
     Dosage: 160 MG 1X PER 1 DAY
     Route: 048
     Dates: end: 20040608
  8. AVLOCARDYL (PROPANOLOL HYDROCHLORIDE, TABLET) [Suspect]
     Indication: ATRIAL FIBRILLATION
     Dosage: 160 MG 1X PER 1 DAY
     Route: 048
     Dates: end: 20040608
  9. AVLOCARDYL (PROPANOLOL HYDROCHLORIDE, TABLET) [Suspect]
     Indication: TACHYCARDIA
     Dosage: 160 MG 1X PER 1 DAY
     Route: 048
     Dates: end: 20040608
  10. PREVISCAN (FLUINDIONE) [Concomitant]
  11. DI-ANTALVIC (DEXTROPROPOXYPHENE HYDROCHLORIDE/PARACETAMOL) [Concomitant]
  12. EUPANTOL (PANTOPRAZOLE) [Concomitant]
  13. AMLODIPINE BESYLATE [Concomitant]

REACTIONS (7)
  - ABDOMINAL PAIN UPPER [None]
  - ASTHENIA [None]
  - ATRIOVENTRICULAR BLOCK FIRST DEGREE [None]
  - BRADYCARDIA [None]
  - DIZZINESS [None]
  - MULTIPLE DRUG OVERDOSE [None]
  - RENAL FAILURE [None]
